FAERS Safety Report 9758343 (Version 2)
Quarter: 2013Q4

REPORT INFORMATION
  Report Type: Spontaneous
  Country: CA (occurrence: CA)
  Receive Date: 20131216
  Receipt Date: 20131216
  Transmission Date: 20140711
  Serious: Yes (Other)
  Sender: FDA-Public Use
  Company Number: CA-BEH-2012032474

PATIENT
  Age: 26 Year
  Sex: Male

DRUGS (7)
  1. BERIPLEX [Suspect]
     Indication: HAEMORRHAGE PROPHYLAXIS
     Dosage: DOSE: 80 ML (2000 IU); STRENGTH: 500 IU
     Route: 042
     Dates: start: 20120513
  2. BERIPLEX [Suspect]
     Route: 042
  3. NIASTASE [Suspect]
     Indication: HAEMORRHAGE
     Route: 042
     Dates: start: 20120513
  4. NIASTASE [Suspect]
     Route: 042
     Dates: start: 20120513
  5. NIASTASE [Suspect]
     Route: 042
     Dates: start: 20120513
  6. NIASTASE [Suspect]
     Route: 042
     Dates: start: 20120513
  7. NIASTASE [Suspect]
     Route: 042

REACTIONS (2)
  - Peripheral artery thrombosis [Recovered/Resolved]
  - Peripheral artery thrombosis [Unknown]
